FAERS Safety Report 4578998-0 (Version None)
Quarter: 2005Q1

REPORT INFORMATION
  Report Type: 
  Country: None (occurrence: None)
  Receive Date: 20050211
  Receipt Date: 20050121
  Transmission Date: 20050727
  Serious: Yes (Hospitalization)
  Sender: FDA-Public Use
  Company Number: US-MERCK-0501USA03533

PATIENT
  Age: 51 Year
  Sex: Female
  Weight: 118 kg

DRUGS (10)
  1. VIOXX [Suspect]
     Indication: SPINAL OSTEOARTHRITIS
     Route: 048
     Dates: start: 20010405
  2. VIOXX [Suspect]
     Indication: ROTATOR CUFF SYNDROME
     Route: 048
     Dates: start: 20010405
  3. PROZAC [Concomitant]
     Route: 065
  4. CLONIDINE [Concomitant]
     Route: 065
  5. LOTREL [Concomitant]
     Route: 065
  6. ASPIRIN [Concomitant]
     Route: 065
  7. PROVENTIL [Concomitant]
     Route: 065
  8. COREG [Concomitant]
     Route: 065
  9. INDOMETHACIN [Concomitant]
     Route: 065
  10. LASIX [Concomitant]
     Route: 065

REACTIONS (14)
  - ANGINA UNSTABLE [None]
  - CAUDA EQUINA SYNDROME [None]
  - CHEST PAIN [None]
  - COLONIC POLYP [None]
  - DIABETES MELLITUS [None]
  - DIVERTICULUM [None]
  - DIVERTICULUM INTESTINAL [None]
  - FALL [None]
  - LIGAMENT SPRAIN [None]
  - MALIGNANT HYPERTENSION [None]
  - MYOCARDIAL ISCHAEMIA [None]
  - NECK INJURY [None]
  - OSTEOARTHRITIS [None]
  - PAIN IN EXTREMITY [None]
